FAERS Safety Report 18304537 (Version 2)
Quarter: 2020Q4

REPORT INFORMATION
  Report Type: Spontaneous
  Country: US (occurrence: US)
  Receive Date: 20200923
  Receipt Date: 20201019
  Transmission Date: 20210113
  Serious: No
  Sender: FDA-Public Use
  Company Number: US-PFIZER INC-2020363978

PATIENT
  Age: 58 Year
  Sex: Female

DRUGS (2)
  1. IBRANCE [Suspect]
     Active Substance: PALBOCICLIB
     Indication: BREAST CANCER FEMALE
     Dosage: 125 MG, CYCLIC (125 MG QD (TWICE A DAY) X 21 DAYS Q 28 DAYS)
     Dates: start: 20200628
  2. IBRANCE [Suspect]
     Active Substance: PALBOCICLIB
     Dosage: 125 MG, CYCLIC (125 MG QD (ONCE A DAY) X 21 DAYS Q (EVERY) 28 DAYS)
     Dates: start: 20200707

REACTIONS (6)
  - Insomnia [Unknown]
  - Back pain [Unknown]
  - Eye disorder [Unknown]
  - Nausea [Unknown]
  - Vomiting [Unknown]
  - Pleural thickening [Not Recovered/Not Resolved]

NARRATIVE: CASE EVENT DATE: 20200914
